FAERS Safety Report 12037001 (Version 2)
Quarter: 2016Q1

REPORT INFORMATION
  Report Type: Spontaneous
  Country: PL (occurrence: PL)
  Receive Date: 20160208
  Receipt Date: 20160226
  Transmission Date: 20160526
  Serious: Yes (Hospitalization, Other)
  Sender: FDA-Public Use
  Company Number: PL-PFIZER INC-2016035244

PATIENT
  Age: 30 Year
  Sex: Female

DRUGS (1)
  1. ARTHROTEC [Suspect]
     Active Substance: DICLOFENAC SODIUM\MISOPROSTOL
     Dosage: 2 DF, UNK
     Route: 067

REACTIONS (4)
  - Oligohydramnios [Unknown]
  - Abortion spontaneous [Unknown]
  - Uterine haemorrhage [Unknown]
  - Product use issue [Unknown]
